FAERS Safety Report 4713422-6 (Version None)
Quarter: 2005Q3

REPORT INFORMATION
  Report Type: 
  Country: None (occurrence: None)
  Receive Date: 20050713
  Receipt Date: 20030403
  Transmission Date: 20060218
  Serious: Yes (Disabling)
  Sender: FDA-Public Use
  Company Number: US-ROCHE-335457

PATIENT
  Age: 61 Year
  Sex: Female

DRUGS (2)
  1. VERSED [Suspect]
     Indication: NAUSEA
     Dosage: VIA A MORPHINE PUMP (MEDTRONIC SYNCHROMED).
     Route: 037
     Dates: start: 20020415
  2. MORPHINE SULFATE [Suspect]
     Route: 065

REACTIONS (4)
  - AMNESIA [None]
  - COMA [None]
  - DRUG WITHDRAWAL SYNDROME [None]
  - MEMORY IMPAIRMENT [None]
